FAERS Safety Report 7296491-1 (Version None)
Quarter: 2011Q1

REPORT INFORMATION
  Report Type: 
  Country: None (occurrence: None)
  Receive Date: 20110216
  Receipt Date: 20110201
  Transmission Date: 20110831
  Serious: Yes (Death, Hospitalization)
  Sender: FDA-Public Use
  Company Number: PHHY2011IT08563

PATIENT
  Sex: Male
  Weight: 57 kg

DRUGS (1)
  1. CERTICAN [Suspect]
     Dosage: 1.5 MG
     Route: 048
     Dates: start: 20070116, end: 20100222

REACTIONS (2)
  - INTERSTITIAL LUNG DISEASE [None]
  - RESPIRATORY FAILURE [None]
